FAERS Safety Report 22094194 (Version 3)
Quarter: 2023Q2

REPORT INFORMATION
  Report Type: Report from Study
  Country: DE (occurrence: DE)
  Receive Date: 20230314
  Receipt Date: 20230418
  Transmission Date: 20230722
  Serious: Yes (Hospitalization)
  Sender: FDA-Public Use
  Company Number: DE-ABBVIE-4313100

PATIENT
  Age: 76 Year
  Sex: Female
  Weight: 55 kg

DRUGS (29)
  1. TNB-383B [Suspect]
     Active Substance: TNB-383B
     Indication: Plasma cell myeloma refractory
     Dosage: LAST DOSE PRIOR TO EVENT WAS 31 JAN 2023 (CYCLE 1 DAY 1)
     Route: 042
     Dates: start: 20230131
  2. POMALIDOMIDE [Suspect]
     Active Substance: POMALIDOMIDE
     Indication: Plasma cell myeloma refractory
     Dosage: DAYS 1-21 OF 28-DAY CYCLE
     Route: 048
     Dates: start: 20230131
  3. DEXAMETHASONE [Suspect]
     Active Substance: DEXAMETHASONE
     Indication: Plasma cell myeloma refractory
     Dosage: CYCLE 1 DAY 1
     Route: 042
     Dates: start: 20230131, end: 20230131
  4. DEXAMETHASONE [Suspect]
     Active Substance: DEXAMETHASONE
     Indication: Plasma cell myeloma refractory
     Route: 048
     Dates: start: 20230207
  5. APIXABAN [Concomitant]
     Active Substance: APIXABAN
     Indication: Embolism arterial
     Route: 050
     Dates: start: 20191201
  6. SPIRONOLACTONE [Concomitant]
     Active Substance: SPIRONOLACTONE
     Indication: Renal failure
     Route: 048
     Dates: start: 202206
  7. CALCIUM CARBONATE\CHOLECALCIFEROL [Concomitant]
     Active Substance: CALCIUM CARBONATE\CHOLECALCIFEROL
     Indication: Osteopenia
     Route: 048
     Dates: start: 20200707
  8. ACYCLOVIR [Concomitant]
     Active Substance: ACYCLOVIR
     Indication: Prophylaxis
     Route: 048
     Dates: start: 20190926
  9. IMODIUM [Concomitant]
     Active Substance: LOPERAMIDE HYDROCHLORIDE
     Indication: Diarrhoea
     Dosage: TIME INTERVAL: AS NECESSARY
     Route: 048
     Dates: start: 20221101
  10. METOCLOPRAMIDE [Concomitant]
     Active Substance: METOCLOPRAMIDE
     Indication: Nausea
     Dosage: TIME INTERVAL: AS NECESSARY
     Route: 048
     Dates: start: 20221101
  11. ACETAMINOPHEN [Concomitant]
     Active Substance: ACETAMINOPHEN
     Indication: Back pain
     Dosage: TIME INTERVAL: AS NECESSARY
     Route: 048
     Dates: start: 20130201
  12. ACETAMINOPHEN [Concomitant]
     Active Substance: ACETAMINOPHEN
     Indication: Back pain
     Route: 048
     Dates: start: 20230131, end: 20230131
  13. ACETAMINOPHEN [Concomitant]
     Active Substance: ACETAMINOPHEN
     Indication: Back pain
     Route: 048
     Dates: start: 20230131, end: 20230131
  14. PANTOPRAZOLE SODIUM [Concomitant]
     Active Substance: PANTOPRAZOLE SODIUM
     Indication: Gastrointestinal disorder prophylaxis
     Route: 048
     Dates: start: 20230126
  15. POTASSIUM CITRATE [Concomitant]
     Active Substance: POTASSIUM CITRATE
     Indication: Renal failure
     Dosage: DOSAGE: 1 BAG
     Route: 048
     Dates: start: 20230126
  16. OLANZAPINE [Concomitant]
     Active Substance: OLANZAPINE
     Indication: Nausea
     Dosage: TIME INTERVAL: AS NECESSARY
     Route: 048
     Dates: start: 20221201
  17. ONDANSETRON [Concomitant]
     Active Substance: ONDANSETRON
     Indication: Nausea
     Dosage: TIME INTERVAL: AS NECESSARY
     Dates: start: 202212
  18. SURFAMETHOXAZOL TRIMETHOPRIM [Concomitant]
     Indication: Infection prophylaxis
     Dates: start: 20230201, end: 20230201
  19. CALCIUM CHLORIDE\MAGNESIUM CHLORIDE\POTASSIUM CHLORIDE\SODIUM ACETATE\ [Concomitant]
     Active Substance: CALCIUM CHLORIDE\MAGNESIUM CHLORIDE\POTASSIUM CHLORIDE\SODIUM ACETATE\SODIUM CHLORIDE
     Indication: Immune effector cell-associated neurotoxicity syndrome
     Dosage: DOSAGE: 80 ML/H
     Route: 040
     Dates: start: 20230131, end: 20230202
  20. CALCIUMCARBONAT COLECALCIFEROL [Concomitant]
     Indication: Prophylaxis
     Route: 048
     Dates: start: 20230201
  21. FOLIC ACID [Concomitant]
     Active Substance: FOLIC ACID
     Indication: Anaemia
     Route: 048
     Dates: start: 20230201
  22. ALLOPURINOL [Concomitant]
     Active Substance: ALLOPURINOL
     Indication: Hyperuricaemia
     Route: 048
     Dates: start: 20230131
  23. RASBURICASE [Concomitant]
     Active Substance: RASBURICASE
     Indication: Hyperuricaemia
     Route: 042
     Dates: start: 20230201, end: 20230201
  24. CIPROFLOXACIN [Concomitant]
     Active Substance: CIPROFLOXACIN
     Indication: Infection prophylaxis
     Route: 048
     Dates: start: 20230207
  25. LEVETIRACETAM [Concomitant]
     Active Substance: LEVETIRACETAM
     Indication: Immune effector cell-associated neurotoxicity syndrome
     Route: 042
     Dates: start: 20230131, end: 20230131
  26. TORSEMIDE [Concomitant]
     Active Substance: TORSEMIDE
     Indication: Renal failure
     Route: 048
     Dates: start: 20230214
  27. TORSEMIDE [Concomitant]
     Active Substance: TORSEMIDE
     Indication: Renal failure
     Route: 048
     Dates: start: 202206, end: 20230213
  28. FAMOTIDINE [Concomitant]
     Active Substance: FAMOTIDINE
     Indication: Prophylaxis
     Route: 048
     Dates: start: 20230131, end: 20230131
  29. DIMETHINDENE [Concomitant]
     Active Substance: DIMETHINDENE
     Indication: Prophylaxis
     Route: 040
     Dates: start: 20230131, end: 20230131

REACTIONS (1)
  - Drug eruption [Recovered/Resolved]

NARRATIVE: CASE EVENT DATE: 20230217
